FAERS Safety Report 7261273-3 (Version None)
Quarter: 2011Q1

REPORT INFORMATION
  Report Type: 
  Country: None (occurrence: None)
  Receive Date: 20110130
  Receipt Date: 20100920
  Transmission Date: 20110831
  Serious: No
  Sender: FDA-Public Use
  Company Number: US-ABBOTT-10P-163-0672161-00

PATIENT
  Age: 50 Year
  Sex: Male

DRUGS (4)
  1. FORADIL [Concomitant]
     Indication: EMPHYSEMA
  2. PENTASA [Concomitant]
     Indication: CROHN'S DISEASE
  3. PERAGORIC LIQUID [Concomitant]
     Indication: EMPHYSEMA
  4. HUMIRA [Suspect]
     Indication: CROHN'S DISEASE
     Dates: start: 20100224

REACTIONS (2)
  - SENSITIVITY OF TEETH [None]
  - ORAL INFECTION [None]
